FAERS Safety Report 9393466 (Version 1)
Quarter: 2013Q3

REPORT INFORMATION
  Report Type: Spontaneous
  Country: ES (occurrence: None)
  Receive Date: 20130705
  Receipt Date: 20130705
  Transmission Date: 20140515
  Serious: Yes (Life-Threatening)
  Sender: FDA-Public Use
  Company Number: ES-023381

PATIENT
  Age: 87 Year
  Sex: Female

DRUGS (1)
  1. CHLORAMBUCIL [Suspect]
     Indication: CHRONIC LYMPHOCYTIC LEUKAEMIA
     Dosage: DAY 1 AND DAY 15 OF EACH CYCLE (26 MILLIGRAM), ORAL
     Route: 048
     Dates: start: 20110214

REACTIONS (1)
  - Accidental overdose [None]
